FAERS Safety Report 23582686 (Version 4)
Quarter: 2024Q2

REPORT INFORMATION
  Report Type: Report from Study
  Country: IL (occurrence: IL)
  Receive Date: 20240229
  Receipt Date: 20240404
  Transmission Date: 20240716
  Serious: Yes (Hospitalization, Other)
  Sender: FDA-Public Use
  Company Number: IL-ABBVIE-5659156

PATIENT
  Sex: Male

DRUGS (2)
  1. CARBIDOPA\LEVODOPA [Suspect]
     Active Substance: CARBIDOPA\LEVODOPA
     Indication: Parkinson^s disease
     Dosage: MORNING DOSE 5.0ML, CONTINUOUS DOSE 1.6ML/HOUR, EXTRA DOSE 0.5ML, NIGHT CONTINUOUS DOSAGE 1.6ML/H...
     Route: 050
  2. CARBIDOPA\LEVODOPA [Suspect]
     Active Substance: CARBIDOPA\LEVODOPA
     Route: 050
     Dates: start: 20231023

REACTIONS (7)
  - Femur fracture [Recovering/Resolving]
  - Limb injury [Recovered/Resolved]
  - Fall [Recovering/Resolving]
  - Device loosening [Recovered/Resolved]
  - Joint dislocation [Recovered/Resolved]
  - Stoma site infection [Recovering/Resolving]
  - Hip arthroplasty [Unknown]
